FAERS Safety Report 23527987 (Version 2)
Quarter: 2024Q1

REPORT INFORMATION
  Report Type: Spontaneous
  Country: FR (occurrence: FR)
  Receive Date: 20240215
  Receipt Date: 20240312
  Transmission Date: 20240410
  Serious: Yes (Hospitalization, Other)
  Sender: FDA-Public Use
  Company Number: None

PATIENT
  Age: 77 Year
  Sex: Female
  Weight: 60 kg

DRUGS (9)
  1. ACETAMINOPHEN [Suspect]
     Active Substance: ACETAMINOPHEN
     Indication: Analgesic therapy
     Dosage: 1 G, 1 DOSAGE TOTAL
     Route: 042
     Dates: start: 20240130, end: 20240130
  2. ROCURONIUM BROMIDE [Suspect]
     Active Substance: ROCURONIUM BROMIDE
     Indication: Induction of anaesthesia
     Dosage: 30 MG, 1 DOSAGE TOTAL
     Route: 042
     Dates: start: 20240130, end: 20240130
  3. PROPOFOL [Suspect]
     Active Substance: PROPOFOL
     Indication: Induction of anaesthesia
     Dosage: 160 MG, 1 DOSAGE TOTAL?ROA: INTRAVENOUS
     Dates: start: 20240130, end: 20240130
  4. KETAMINE [Suspect]
     Active Substance: KETAMINE
     Indication: Induction of anaesthesia
     Dosage: 10 MG, 1 DOSAGE TOTAL?ROA: INTRAVENOUS
     Dates: start: 20240130, end: 20240130
  5. DEXAMETHASONE [Suspect]
     Active Substance: DEXAMETHASONE
     Indication: Induction of anaesthesia
     Dosage: 8 MG, 1 DOSAGE TOTAL?ROA: INTRAVENOUS
     Dates: start: 20240130, end: 20240130
  6. SUFENTANIL CITRATE [Suspect]
     Active Substance: SUFENTANIL CITRATE
     Indication: Induction of anaesthesia
     Dosage: 15 MCG, 1 DOSAGE TOTAL?ROA: INTRAVENOUS
     Dates: start: 20240130, end: 20240130
  7. EPINEPHRINE BITARTRATE\LIDOCAINE HYDROCHLORIDE [Suspect]
     Active Substance: EPINEPHRINE BITARTRATE\LIDOCAINE HYDROCHLORIDE
     Indication: Induction of anaesthesia
     Dosage: 50 MG, 1 DOSAGE TOTAL?FOA: INJECTION?ROA: INTRAVENOUS
     Dates: start: 20240130, end: 20240130
  8. NEFOPAM HYDROCHLORIDE [Suspect]
     Active Substance: NEFOPAM HYDROCHLORIDE
     Indication: Analgesic therapy
     Dosage: 20 MG, 1 DOSAGE TOTAL?ROA: INTRAVENOUS
     Dates: start: 20240130, end: 20240130
  9. KETOPROFEN [Suspect]
     Active Substance: KETOPROFEN
     Indication: Analgesic therapy
     Dosage: ROA: INTRAVENOUS
     Dates: start: 20240130, end: 20240130

REACTIONS (1)
  - Anaphylactic shock [Recovered/Resolved]

NARRATIVE: CASE EVENT DATE: 20240130
